FAERS Safety Report 5905705-9 (Version None)
Quarter: 2008Q4

REPORT INFORMATION
  Report Type: 
  Country: None (occurrence: None)
  Receive Date: 20081002
  Receipt Date: 20080916
  Transmission Date: 20090506
  Serious: Yes (Disabling, Other)
  Sender: FDA-Public Use
  Company Number: US-CELGENEUS-163-20785-08091650

PATIENT
  Sex: Female

DRUGS (2)
  1. THALOMID [Suspect]
     Indication: MULTIPLE MYELOMA
     Route: 048
     Dates: start: 20080806, end: 20080801
  2. THALOMID [Suspect]
     Route: 048
     Dates: start: 20080101

REACTIONS (4)
  - ABASIA [None]
  - BLINDNESS [None]
  - DIZZINESS [None]
  - FALL [None]
